FAERS Safety Report 6121941-3 (Version None)
Quarter: 2009Q1

REPORT INFORMATION
  Report Type: 
  Country: None (occurrence: None)
  Receive Date: 20090313
  Receipt Date: 20090226
  Transmission Date: 20090719
  Serious: Yes (Death, Life-Threatening, Hospitalization)
  Sender: FDA-Public Use
  Company Number: US024269

PATIENT
  Age: 48 Year
  Sex: Male

DRUGS (10)
  1. TRISENOX [Suspect]
     Indication: ACUTE PROMYELOCYTIC LEUKAEMIA
     Dosage: 9.15 DAILY INTRAVENOUS DRIP
     Route: 041
     Dates: start: 20061115, end: 20061229
  2. MAGNESIUM SULFATE [Concomitant]
  3. CALCIUM [Concomitant]
  4. GABEXATE MESILATE [Concomitant]
  5. HYDROCORTISONE SODIUM SUCCINATE [Concomitant]
  6. TOBRAMYCIN [Concomitant]
  7. CIPROFLOXACIN [Concomitant]
  8. MEROPENEM [Concomitant]
  9. HALOPERIDOL [Concomitant]
  10. LENOGRASTIM [Concomitant]

REACTIONS (11)
  - BLOOD ALBUMIN DECREASED [None]
  - BLOOD ALKALINE PHOSPHATASE INCREASED [None]
  - BLOOD CALCIUM DECREASED [None]
  - BLOOD CHOLESTEROL DECREASED [None]
  - BLOOD CREATINE PHOSPHOKINASE DECREASED [None]
  - BLOOD SODIUM DECREASED [None]
  - DISSEMINATED INTRAVASCULAR COAGULATION [None]
  - ELECTROCARDIOGRAM QT PROLONGED [None]
  - HYPERGLYCAEMIA [None]
  - PANCYTOPENIA [None]
  - PROTEIN TOTAL DECREASED [None]
